FAERS Safety Report 16805797 (Version 2)
Quarter: 2019Q4

REPORT INFORMATION
  Report Type: Spontaneous
  Country: US (occurrence: US)
  Receive Date: 20190913
  Receipt Date: 20191121
  Transmission Date: 20200122
  Serious: Yes (Hospitalization)
  Sender: FDA-Public Use
  Company Number: US-VERTEX PHARMACEUTICALS-2019-008689

PATIENT
  Age: 16 Year
  Sex: Female
  Weight: 54 kg

DRUGS (17)
  1. CALCIUM 500+D [Concomitant]
     Active Substance: CALCIUM\VITAMIN D
     Dosage: 1 DOSAGE FORM, BID
     Route: 048
  2. CHOLECALCIFEROL [Concomitant]
     Active Substance: CHOLECALCIFEROL
     Dosage: 1 DOSAGE FORM, QD
     Route: 048
  3. VITAMIN A ACETATE. [Concomitant]
     Active Substance: VITAMIN A ACETATE
     Dosage: 1 CAPSULE, QD
     Route: 048
  4. PULMOZYME [Concomitant]
     Active Substance: DORNASE ALFA
     Dosage: 2.5 MG, QD
     Route: 055
  5. LIDOCAINE. [Concomitant]
     Active Substance: LIDOCAINE
     Dosage: 1 APPLICATORFUL APPLY TOPICALLY AS NEEDED
     Route: 061
  6. PROAIR HFA [Concomitant]
     Active Substance: ALBUTEROL SULFATE
     Dosage: 2-4 PUFFS, BID
  7. BETHKIS [Concomitant]
     Active Substance: TOBRAMYCIN
     Dosage: 1 EACH NEBULLIZER,  BID
     Route: 055
  8. SYMDEKO [Suspect]
     Active Substance: IVACAFTOR\TEZACAFTOR
     Indication: CYSTIC FIBROSIS
     Dosage: TEZACAFTOR 100 MG, IVACAFTOR 150 MG QAM; IVACAFTOR 150 MG QPM
     Route: 048
     Dates: start: 20190805
  9. HYPERSAL [Concomitant]
     Active Substance: SODIUM CHLORIDE
     Dosage: 4 MILLILITER, BID
  10. VITAMIN E [Concomitant]
     Active Substance: .ALPHA.-TOCOPHEROL
     Dosage: 100 UNITS, QD
     Route: 048
  11. CYPROHEPTADINE. [Concomitant]
     Active Substance: CYPROHEPTADINE
     Dosage: 1 TABLET AT BEDTIME 11 REFILL
     Route: 048
  12. MIRALAX [Concomitant]
     Active Substance: POLYETHYLENE GLYCOL 3350
     Dosage: 1 PACKET, BID
     Route: 048
  13. CIPROFLOXACIN. [Concomitant]
     Active Substance: CIPROFLOXACIN
     Dosage: 1 DOSAGE FORM, BID
  14. ZENPEP [Concomitant]
     Active Substance: PANCRELIPASE AMYLASE\PANCRELIPASE LIPASE\PANCRELIPASE PROTEASE
     Dosage: 3 CAPSULE ORAL WITH MEALS
     Route: 048
  15. LORATADINE. [Concomitant]
     Active Substance: LORATADINE
     Dosage: 1 TABLET, QD
     Route: 048
  16. OMEPRAZOLE. [Concomitant]
     Active Substance: OMEPRAZOLE
     Dosage: 1 DOSAGE FORM, QD
     Route: 048
  17. ELAMAX [Concomitant]
     Route: 061

REACTIONS (1)
  - Kidney infection [Recovering/Resolving]

NARRATIVE: CASE EVENT DATE: 201908
